FAERS Safety Report 9271840 (Version 1)
Quarter: 2013Q2

REPORT INFORMATION
  Report Type: Spontaneous
  Country: US (occurrence: US)
  Receive Date: 20130506
  Receipt Date: 20130506
  Transmission Date: 20140414
  Serious: No
  Sender: FDA-Public Use
  Company Number: US-PFIZER INC-2013140242

PATIENT
  Age: 59 Year
  Sex: Male
  Weight: 118 kg

DRUGS (2)
  1. NEURONTIN [Suspect]
     Indication: NEURALGIA
     Dosage: 100 MG, 3X/DAY
     Route: 048
     Dates: start: 20130501
  2. INDOCIN [Concomitant]
     Dosage: UNK

REACTIONS (2)
  - Gait disturbance [Not Recovered/Not Resolved]
  - Off label use [Unknown]
